FAERS Safety Report 7700402-1 (Version None)
Quarter: 2011Q3

REPORT INFORMATION
  Report Type: 
  Country: None (occurrence: None)
  Receive Date: 20110816
  Receipt Date: 20110810
  Transmission Date: 20111222
  Serious: Yes (Other)
  Sender: FDA-Public Use
  Company Number: WAES 1108USA01271

PATIENT
  Age: 71 Year
  Sex: Female
  Weight: 45.3597 kg

DRUGS (3)
  1. OS COSOPT 2.0/0.5% DRPS [Suspect]
     Indication: GLAUCOMA
     Dosage: OPHT, 10 ML/BID/OPHT
     Route: 047
     Dates: start: 19900101
  2. XALATAN [Suspect]
     Indication: GLAUCOMA
     Dosage: OPHT, 2.5 ML/DAILY.OPHT
     Route: 047
     Dates: start: 19900101
  3. ALPHAGAN [Suspect]
     Indication: GLAUCOMA
     Dosage: OPHT, 15 MG/DAILY/OPHT
     Route: 047
     Dates: start: 19900101

REACTIONS (2)
  - INTRAOCULAR PRESSURE INCREASED [None]
  - WRONG DEVICE USED [None]
